FAERS Safety Report 6312623-3 (Version None)
Quarter: 2009Q3

REPORT INFORMATION
  Report Type: 
  Country: None (occurrence: None)
  Receive Date: 20090814
  Receipt Date: 20090803
  Transmission Date: 20100115
  Serious: Yes (Other)
  Sender: FDA-Public Use
  Company Number: FPI-09-FIR-0224

PATIENT
  Sex: Male

DRUGS (2)
  1. FIRMAGON (DEGARELIX) [Suspect]
     Indication: METASTASES TO BONE
     Dosage: 240MG
  2. FIRMAGON (DEGARELIX) [Suspect]
     Indication: NEOPLASM MALIGNANT
     Dosage: 240MG

REACTIONS (5)
  - BONE PAIN [None]
  - CARDIAC ARREST [None]
  - CARDIAC FAILURE CONGESTIVE [None]
  - NAUSEA [None]
  - VOMITING [None]
